FAERS Safety Report 21007071 (Version 3)
Quarter: 2022Q3

REPORT INFORMATION
  Report Type: Report from Study
  Country: US (occurrence: US)
  Receive Date: 20220625
  Receipt Date: 20220811
  Transmission Date: 20221027
  Serious: Yes (Other)
  Sender: FDA-Public Use
  Company Number: US-TAKEDA-2022TUS042526

PATIENT
  Age: 70 Year
  Sex: Female

DRUGS (30)
  1. TEDUGLUTIDE [Suspect]
     Active Substance: TEDUGLUTIDE
     Indication: Short-bowel syndrome
     Dosage: 2.91 MILLIGRAM, QD
     Route: 042
     Dates: start: 20180216, end: 20190110
  2. TEDUGLUTIDE [Suspect]
     Active Substance: TEDUGLUTIDE
     Indication: Short-bowel syndrome
     Dosage: 2.91 MILLIGRAM, QD
     Route: 042
     Dates: start: 20180216, end: 20190110
  3. TEDUGLUTIDE [Suspect]
     Active Substance: TEDUGLUTIDE
     Indication: Short-bowel syndrome
     Dosage: 2.91 MILLIGRAM, QD
     Route: 042
     Dates: start: 20180216, end: 20190110
  4. TEDUGLUTIDE [Suspect]
     Active Substance: TEDUGLUTIDE
     Indication: Short-bowel syndrome
     Dosage: 2.91 MILLIGRAM, QD
     Route: 042
     Dates: start: 20180216, end: 20190110
  5. OCTREOTIDE [Concomitant]
     Active Substance: OCTREOTIDE
     Indication: Diarrhoea
     Dosage: 50 MICROGRAM, TID
     Route: 058
     Dates: start: 20220601
  6. ERGOCALCIFEROL [Concomitant]
     Active Substance: ERGOCALCIFEROL
     Indication: Vitamin D deficiency
     Dosage: 1.25 MILLIGRAM, 1/WEEK
     Route: 048
     Dates: start: 20210610
  7. NICODERM CQ [Concomitant]
     Active Substance: NICOTINE
     Indication: Tobacco abuse
     Dosage: 7 MILLIGRAM, QD
     Route: 062
     Dates: start: 20211026, end: 20211111
  8. NICOTINE [Concomitant]
     Active Substance: NICOTINE
     Indication: Tobacco abuse
     Dosage: 4 MILLIGRAM
     Route: 048
     Dates: start: 20200714
  9. ALBUTEROL [Concomitant]
     Active Substance: ALBUTEROL
     Indication: Chronic obstructive pulmonary disease
     Dosage: 90 MICROGRAM
     Route: 055
     Dates: start: 20151116
  10. CEFTRIAXONE [Concomitant]
     Active Substance: CEFTRIAXONE
     Indication: Device related infection
     Dosage: 400 MILLILITER, QD
     Route: 042
     Dates: start: 20180323
  11. CYANOCOBALAMIN [Concomitant]
     Active Substance: CYANOCOBALAMIN
     Indication: Vitamin B12 deficiency
     Dosage: 6 MILLILITER
     Route: 030
     Dates: start: 20170306
  12. SODIUM HYPOCHLORITE [Concomitant]
     Active Substance: SODIUM HYPOCHLORITE
     Indication: Abdominal abscess
     Dosage: UNK UNK, QD
     Route: 061
     Dates: start: 20170502
  13. LOPERAMIDE HYDROCHLORIDE [Concomitant]
     Active Substance: LOPERAMIDE HYDROCHLORIDE
     Indication: Diarrhoea
     Dosage: 2 MILLIGRAM
     Route: 048
     Dates: start: 20170818
  14. MAGNESIUM LACTATE [Concomitant]
     Active Substance: MAGNESIUM LACTATE
     Indication: Magnesium deficiency
     Dosage: 84 MILLIGRAM
     Route: 048
     Dates: start: 20180103
  15. PANTOPRAZOLE [Concomitant]
     Active Substance: PANTOPRAZOLE
     Indication: Gastrooesophageal reflux disease
     Dosage: 40 MILLIGRAM, QD
     Route: 048
     Dates: start: 20180124
  16. VANCOMYCIN [Concomitant]
     Active Substance: VANCOMYCIN
     Indication: Sepsis
     Dosage: 1250 MILLIGRAM, SINGLE
     Route: 042
     Dates: start: 20190711, end: 20190713
  17. VANCOMYCIN [Concomitant]
     Active Substance: VANCOMYCIN
     Indication: Device related infection
     Dosage: 800 MILLIGRAM, SINGLE
     Route: 042
     Dates: start: 20180322, end: 20190713
  18. CHOLECALCIFEROL [Concomitant]
     Active Substance: CHOLECALCIFEROL
     Indication: Vitamin D deficiency
     Dosage: 1000 INTERNATIONAL UNIT, QD
     Route: 048
     Dates: start: 20180216, end: 20190716
  19. SODIUM CHLORIDE [Concomitant]
     Active Substance: SODIUM CHLORIDE
     Indication: Short-bowel syndrome
     Dosage: 4000 MILLIGRAM
     Route: 042
     Dates: start: 20180322
  20. VASOPRESSIN [Concomitant]
     Active Substance: VASOPRESSIN
     Indication: Hypotension
     Dosage: 40 INTERNATIONAL UNIT
     Dates: start: 20190711, end: 20190712
  21. NOREPINEPHRINE [Concomitant]
     Active Substance: NOREPINEPHRINE
     Indication: Hypotension
     Dosage: 4 MILLIGRAM
     Route: 042
     Dates: start: 20190711, end: 20190713
  22. PIPERACILLIN AND TAZOBACTAM [Concomitant]
     Active Substance: PIPERACILLIN SODIUM\TAZOBACTAM SODIUM
     Indication: Sepsis
     Dosage: 4.50 GRAM, TID
     Dates: start: 20190711, end: 20190714
  23. OXYCODONE [Concomitant]
     Active Substance: OXYCODONE
     Indication: Abdominal pain
     Dosage: 5 MILLIGRAM
     Route: 048
     Dates: start: 20190712, end: 20190718
  24. BENADRYL [Concomitant]
     Active Substance: DIPHENHYDRAMINE HYDROCHLORIDE
     Indication: Dermatitis
     Dosage: 25 MILLIGRAM
     Route: 048
     Dates: start: 20190715, end: 20190715
  25. EUCERIN [Concomitant]
     Active Substance: ENSULIZOLE\EUCERIN\OCTINOXATE\OCTISALATE\TITANIUM DIOXIDE\ZINC OXIDE
     Indication: Dermatitis
     Dosage: UNK UNK, SINGLE
     Route: 062
     Dates: start: 20190715, end: 20190715
  26. MIRTAZAPINE [Concomitant]
     Active Substance: MIRTAZAPINE
     Indication: Antidepressant therapy
     Dosage: 15 MILLIGRAM, QD
     Route: 048
     Dates: start: 20220209
  27. ATROPINE\DIPHENOXYLATE [Concomitant]
     Active Substance: ATROPINE\DIPHENOXYLATE
     Indication: Diarrhoea
     Dosage: 2.50 MILLIGRAM, QID
     Route: 048
     Dates: start: 20220121, end: 20220326
  28. CALCITRIOL [Concomitant]
     Active Substance: CALCITRIOL
     Indication: Vitamin D deficiency
     Dosage: 0.25 MICROGRAM, QD
     Route: 048
     Dates: start: 20210426
  29. CALCIUM CITRATE\VITAMIN D [Concomitant]
     Active Substance: CALCIUM CITRATE\VITAMIN D
     Indication: Calcium deficiency
     Dosage: 30 MILLILITER, BID
  30. CHOLECALCIFEROL [Concomitant]
     Active Substance: CHOLECALCIFEROL
     Indication: Vitamin D deficiency
     Dosage: UNK UNK, QD
     Route: 048
     Dates: start: 20210610

REACTIONS (1)
  - Acute kidney injury [Recovered/Resolved]

NARRATIVE: CASE EVENT DATE: 20201107
